FAERS Safety Report 15156179 (Version 3)
Quarter: 2018Q3

REPORT INFORMATION
  Report Type: Spontaneous
  Country: US (occurrence: US)
  Receive Date: 20180717
  Receipt Date: 20180924
  Transmission Date: 20181010
  Serious: Yes (Hospitalization)
  Sender: FDA-Public Use
  Company Number: US-PFIZER INC-2018286195

PATIENT
  Age: 80 Year
  Sex: Female
  Weight: 114 kg

DRUGS (1)
  1. IBRANCE [Suspect]
     Active Substance: PALBOCICLIB
     Indication: BREAST CANCER METASTATIC
     Dosage: 125 MG, CYCLIC (DAYS 1?21 Q 28 DAYS )
     Route: 048
     Dates: start: 20180625

REACTIONS (6)
  - Eye pruritus [Unknown]
  - Blood calcium increased [Unknown]
  - Condition aggravated [Unknown]
  - Hypoaesthesia [Unknown]
  - Lacrimation increased [Unknown]
  - Hypersensitivity [Unknown]
